FAERS Safety Report 9384731 (Version 1)
Quarter: 2013Q3

REPORT INFORMATION
  Report Type: Spontaneous
  Country: GB (occurrence: None)
  Receive Date: 20130701
  Receipt Date: 20130701
  Transmission Date: 20140515
  Serious: Yes (Other)
  Sender: FDA-Public Use
  Company Number: AUR-APL-2013-05205

PATIENT
  Age: 58 Year
  Sex: Male
  Weight: 109 kg

DRUGS (4)
  1. PERINDOPRIL [Suspect]
     Indication: MYOCARDIAL INFARCTION
     Route: 048
     Dates: start: 20121023, end: 20130119
  2. ASPIRIN (ACETYLSALICYLIC ACID) [Concomitant]
  3. CLOPIDOGREL (CLOPIDOGREL) [Concomitant]
  4. OMACOR (OMEGA-3-ACID ETHYL ESTER) [Concomitant]

REACTIONS (1)
  - Heart rate irregular [None]
